APPROVED DRUG PRODUCT: DROSPIRENONE AND ETHINYL ESTRADIOL
Active Ingredient: DROSPIRENONE; ETHINYL ESTRADIOL
Strength: 3MG;0.02MG
Dosage Form/Route: TABLET;ORAL
Application: A204296 | Product #001 | TE Code: AB
Applicant: GLENMARK PHARMACEUTICALS LTD
Approved: Aug 17, 2015 | RLD: No | RS: No | Type: RX